FAERS Safety Report 13535157 (Version 1)
Quarter: 2017Q2

REPORT INFORMATION
  Report Type: Spontaneous
  Country: US (occurrence: US)
  Receive Date: 20170511
  Receipt Date: 20170511
  Transmission Date: 20170830
  Serious: Yes (Other)
  Sender: FDA-Public Use
  Company Number: US-BEH-2017080154

PATIENT
  Age: 74 Year
  Sex: Male
  Weight: 97.52 kg

DRUGS (30)
  1. LIDOCAINE/PRILOCAINE [Concomitant]
     Active Substance: LIDOCAINE\PRILOCAINE
  2. ALIGN [Concomitant]
     Active Substance: BIFIDOBACTERIUM LONGUM SUBSP. INFANTIS
  3. MULTIVITAMIN                       /00097801/ [Concomitant]
     Active Substance: VITAMINS
  4. ACCUPRIL [Concomitant]
     Active Substance: QUINAPRIL HYDROCHLORIDE
  5. NITROSTAT [Concomitant]
     Active Substance: NITROGLYCERIN
  6. MAGNESIUM [Concomitant]
     Active Substance: MAGNESIUM
  7. HIZENTRA [Suspect]
     Active Substance: HUMAN IMMUNOGLOBULIN G
     Indication: IMMUNODEFICIENCY COMMON VARIABLE
     Dosage: 10 G, UNK
     Route: 058
     Dates: start: 20160516
  8. INSULIN [Concomitant]
     Active Substance: INSULIN NOS
  9. LMX                                /00033401/ [Concomitant]
  10. TRAMADOL. [Concomitant]
     Active Substance: TRAMADOL
  11. FLECAINIDE ACETATE. [Concomitant]
     Active Substance: FLECAINIDE ACETATE
  12. CETIRIZINE [Concomitant]
     Active Substance: CETIRIZINE HYDROCHLORIDE
  13. DIPHENHYDRAMINE. [Concomitant]
     Active Substance: DIPHENHYDRAMINE
  14. NORVASC [Concomitant]
     Active Substance: AMLODIPINE BESYLATE
  15. SYNTHROID [Concomitant]
     Active Substance: LEVOTHYROXINE SODIUM
  16. XARELTO [Concomitant]
     Active Substance: RIVAROXABAN
  17. LUTEIN                             /01638501/ [Concomitant]
     Active Substance: LUTEIN
  18. EPIPEN [Concomitant]
     Active Substance: EPINEPHRINE
  19. OMEPRAZOLE. [Concomitant]
     Active Substance: OMEPRAZOLE
  20. SELENIUM [Concomitant]
     Active Substance: SELENIUM
  21. HIZENTRA [Suspect]
     Active Substance: HUMAN IMMUNOGLOBULIN G
     Dosage: UNK
     Route: 058
  22. LIPITOR [Concomitant]
     Active Substance: ATORVASTATIN CALCIUM
  23. METOPROLOL SUCCINATE. [Concomitant]
     Active Substance: METOPROLOL SUCCINATE
  24. GABAPENTIN. [Concomitant]
     Active Substance: GABAPENTIN
  25. TORSEMIDE. [Concomitant]
     Active Substance: TORSEMIDE
  26. ACETAMINOPHEN. [Concomitant]
     Active Substance: ACETAMINOPHEN
  27. ENTOCORT [Concomitant]
     Active Substance: BUDESONIDE
  28. GLUCOSAMINE CHONDROITIN MSM [Concomitant]
  29. CELEBREX [Concomitant]
     Active Substance: CELECOXIB
  30. METFORMIN [Concomitant]
     Active Substance: METFORMIN HYDROCHLORIDE

REACTIONS (2)
  - Bradycardia [Unknown]
  - Asthenia [Unknown]

NARRATIVE: CASE EVENT DATE: 2017
